FAERS Safety Report 19404554 (Version 1)
Quarter: 2021Q2

REPORT INFORMATION
  Report Type: Spontaneous
  Country: US (occurrence: US)
  Receive Date: 20210611
  Receipt Date: 20210611
  Transmission Date: 20210717
  Serious: Yes (Hospitalization)
  Sender: FDA-Public Use
  Company Number: None

PATIENT
  Age: 55 Year
  Sex: Female

DRUGS (7)
  1. METOPROLOL. [Concomitant]
     Active Substance: METOPROLOL
  2. ATORVASTATIN [Concomitant]
     Active Substance: ATORVASTATIN
  3. ASPIRIN. [Concomitant]
     Active Substance: ASPIRIN
  4. RANEXA [Concomitant]
     Active Substance: RANOLAZINE
  5. VITAMIN B [Concomitant]
     Active Substance: VITAMIN B
  6. ZETIA [Concomitant]
     Active Substance: EZETIMIBE
  7. REPATHA [Suspect]
     Active Substance: EVOLOCUMAB
     Indication: CARDIAC DISORDER
     Dosage: ?          OTHER FREQUENCY:EVERY 14 DAYS;?
     Route: 058
     Dates: start: 20190716

REACTIONS (3)
  - Biliary colic [None]
  - Rhinorrhoea [None]
  - Product dose omission issue [None]

NARRATIVE: CASE EVENT DATE: 20210610
